FAERS Safety Report 23862787 (Version 3)
Quarter: 2025Q3

REPORT INFORMATION
  Report Type: Spontaneous
  Country: US (occurrence: US)
  Receive Date: 20240516
  Receipt Date: 20250814
  Transmission Date: 20251021
  Serious: Yes (Hospitalization)
  Sender: SANOFI AVENTIS
  Company Number: US-SA-SAC20240511000562

PATIENT
  Age: 49 Year
  Sex: Male

DRUGS (6)
  1. FABRAZYME [Suspect]
     Active Substance: AGALSIDASE BETA
     Indication: Fabry^s disease
     Dosage: 80 MG (70+10), QOW
     Route: 042
     Dates: start: 202304
  2. FABRAZYME [Suspect]
     Active Substance: AGALSIDASE BETA
     Dosage: 83 MG, QOW
     Route: 042
  3. SODIUM CHLORIDE [Concomitant]
     Active Substance: SODIUM CHLORIDE
  4. EPINEPHRINE [Concomitant]
     Active Substance: EPINEPHRINE
  5. SODIUM CHLORIDE [Concomitant]
     Active Substance: SODIUM CHLORIDE
  6. STERILE WATER [Concomitant]
     Active Substance: WATER

REACTIONS (3)
  - Localised infection [Unknown]
  - Poor venous access [Unknown]
  - Intentional dose omission [Unknown]

NARRATIVE: CASE EVENT DATE: 20240704
